FAERS Safety Report 4348901-7 (Version None)
Quarter: 2004Q1

REPORT INFORMATION
  Report Type: 
  Country: None (occurrence: None)
  Receive Date: 20040325
  Receipt Date: 20031210
  Transmission Date: 20041129
  Serious: No
  Sender: FDA-Public Use
  Company Number: USA031152251

PATIENT
  Age: 79 Year
  Sex: Female

DRUGS (6)
  1. FORTEO [Suspect]
     Indication: OSTEOPOROSIS
     Dosage: 20 UG/DAY
     Dates: start: 20030715
  2. ALPRAZOLAM [Concomitant]
  3. PROPRANOLOL [Concomitant]
  4. PROPOXYPHENE HCL [Concomitant]
  5. NAUSEA PILL [Concomitant]
  6. THEO-DUR [Concomitant]

REACTIONS (1)
  - ALOPECIA [None]
